FAERS Safety Report 9290547 (Version 1)
Quarter: 2013Q2

REPORT INFORMATION
  Report Type: Spontaneous
  Country: US (occurrence: US)
  Receive Date: 20130515
  Receipt Date: 20130515
  Transmission Date: 20140414
  Serious: No
  Sender: FDA-Public Use
  Company Number: US-PFIZER INC-2013149048

PATIENT
  Age: 62 Year
  Sex: Male
  Weight: 72.56 kg

DRUGS (3)
  1. NEURONTIN [Suspect]
     Dosage: 100 MG, UNK
     Dates: start: 201205, end: 2012
  2. PERCOCET [Concomitant]
     Indication: PAIN
     Dosage: UNK
  3. IBUPROFEN [Concomitant]
     Dosage: 800 MG, 3X/DAY

REACTIONS (1)
  - Hypersensitivity [Unknown]
